FAERS Safety Report 14971910 (Version 1)
Quarter: 2018Q2

REPORT INFORMATION
  Report Type: Spontaneous
  Country: GR (occurrence: GR)
  Receive Date: 20180605
  Receipt Date: 20180605
  Transmission Date: 20180711
  Serious: Yes (Life-Threatening)
  Sender: FDA-Public Use
  Company Number: GR-BRISTOL-MYERS SQUIBB COMPANY-BMS-2018-048494

PATIENT
  Age: 62 Year
  Sex: Male
  Weight: 105 kg

DRUGS (2)
  1. ATORVASTATIN [Suspect]
     Active Substance: ATORVASTATIN
     Indication: DYSLIPIDAEMIA
     Dosage: 1 DF, DAILY
     Route: 048
     Dates: start: 2014, end: 2016
  2. PRAVASTATIN SODIUM. [Suspect]
     Active Substance: PRAVASTATIN SODIUM
     Indication: DYSLIPIDAEMIA
     Dosage: 1 DF, DAILY
     Route: 048
     Dates: start: 2014, end: 2016

REACTIONS (3)
  - Blood creatine phosphokinase increased [Unknown]
  - Myalgia [Unknown]
  - Myopathy [Unknown]

NARRATIVE: CASE EVENT DATE: 2014
